FAERS Safety Report 8256797-6 (Version None)
Quarter: 2012Q1

REPORT INFORMATION
  Report Type: 
  Country: None (occurrence: None)
  Receive Date: 20120330
  Receipt Date: 20120330
  Transmission Date: 20120608
  Serious: Yes (Life-Threatening)
  Sender: FDA-Public Use
  Company Number: None

PATIENT
  Age: 42 Year
  Sex: Female
  Weight: 86.1834 kg

DRUGS (2)
  1. LIDODERM [Suspect]
     Indication: COSTOCHONDRITIS
     Dosage: PATCH 12 HRS ON - 12 HRS OFF
     Route: 061
     Dates: start: 20120222, end: 20120229
  2. LIDODERM [Suspect]
     Indication: PAIN
     Dosage: PATCH 12 HRS ON - 12 HRS OFF
     Route: 061
     Dates: start: 20120222, end: 20120229

REACTIONS (7)
  - MALAISE [None]
  - DYSPNOEA [None]
  - DROOLING [None]
  - SWOLLEN TONGUE [None]
  - SUICIDE ATTEMPT [None]
  - SWELLING FACE [None]
  - POSTURE ABNORMAL [None]
